FAERS Safety Report 9751696 (Version 1)
Quarter: 2013Q4

REPORT INFORMATION
  Report Type: Spontaneous
  Country: US (occurrence: US)
  Receive Date: 20131213
  Receipt Date: 20131213
  Transmission Date: 20140711
  Serious: Yes (Hospitalization)
  Sender: FDA-Public Use
  Company Number: US-ROCHE-1312923

PATIENT
  Sex: Female

DRUGS (5)
  1. BONIVA [Suspect]
     Indication: RHEUMATOID ARTHRITIS
     Route: 065
     Dates: end: 20120520
  2. ARAVA [Concomitant]
  3. COREG [Concomitant]
  4. SYNTHROID [Concomitant]
  5. BABY ASPIRIN [Concomitant]

REACTIONS (7)
  - Bone disorder [Unknown]
  - Osteomyelitis [Unknown]
  - Oral pain [Unknown]
  - Abdominal discomfort [Unknown]
  - Oral discomfort [Unknown]
  - Diarrhoea [Unknown]
  - Musculoskeletal pain [Unknown]
